FAERS Safety Report 5007239-5 (Version None)
Quarter: 2006Q1

REPORT INFORMATION
  Report Type: 
  Country: None (occurrence: None)
  Receive Date: 20060320
  Receipt Date: 20050308
  Transmission Date: 20060701
  Serious: Yes (Life-Threatening, Other)
  Sender: FDA-Public Use
  Company Number: 2005-03-0814

PATIENT
  Age: 36 Year
  Sex: Male
  Weight: 91.6266 kg

DRUGS (6)
  1. PEG-INTRON [Suspect]
     Dosage: 150 MCG QWK, SUBCUTANEOUS
     Route: 058
     Dates: start: 20041030, end: 20050131
  2. RIBAVIRIN [Suspect]
     Dosage: 600 MG BID, ORAL
     Route: 048
  3. LIPITOR [Concomitant]
  4. LISINOPRIL [Concomitant]
  5. OXYCODONE HCL [Concomitant]
  6. ASPIRIN [Concomitant]

REACTIONS (2)
  - DEPRESSION [None]
  - SUICIDE ATTEMPT [None]
